FAERS Safety Report 8458944-X (Version None)
Quarter: 2012Q2

REPORT INFORMATION
  Report Type: 
  Country: None (occurrence: None)
  Receive Date: 20120622
  Receipt Date: 20120613
  Transmission Date: 20120825
  Serious: Yes (Other)
  Sender: FDA-Public Use
  Company Number: US-ROCHE-1032902

PATIENT
  Sex: Male
  Weight: 61.29 kg

DRUGS (1)
  1. ACCUTANE [Suspect]
     Indication: ACNE
     Dates: start: 19910101, end: 19930101

REACTIONS (4)
  - CROHN'S DISEASE [None]
  - ANXIETY [None]
  - IGA NEPHROPATHY [None]
  - INFLAMMATORY BOWEL DISEASE [None]
